FAERS Safety Report 21087416 (Version 1)
Quarter: 2022Q3

REPORT INFORMATION
  Report Type: Spontaneous
  Country: US (occurrence: None)
  Receive Date: 20220714
  Receipt Date: 20220714
  Transmission Date: 20221027
  Serious: No
  Sender: FDA-Public Use
  Company Number: None

PATIENT
  Age: 35 Year
  Sex: Female
  Weight: 55.35 kg

DRUGS (7)
  1. EVUSHELD [Suspect]
     Active Substance: CILGAVIMAB\TIXAGEVIMAB
     Indication: COVID-19 prophylaxis
     Dosage: OTHER FREQUENCY : ONCE EVERY 6 MONTH;?
     Route: 030
     Dates: start: 20220620, end: 20220620
  2. CELLCEPT [Concomitant]
     Active Substance: MYCOPHENOLATE MOFETIL
  3. WARFARIN [Concomitant]
     Active Substance: WARFARIN
  4. PREDNISONE [Concomitant]
     Active Substance: PREDNISONE
  5. OTEZLA [Concomitant]
     Active Substance: APREMILAST
  6. TOPIRAMATE [Concomitant]
     Active Substance: TOPIRAMATE
  7. CABERGOLINE [Concomitant]
     Active Substance: CABERGOLINE

REACTIONS (4)
  - Body temperature increased [None]
  - Chills [None]
  - Fatigue [None]
  - Tongue geographic [None]

NARRATIVE: CASE EVENT DATE: 20220620
